FAERS Safety Report 7026895-3 (Version None)
Quarter: 2010Q4

REPORT INFORMATION
  Report Type: 
  Country: None (occurrence: None)
  Receive Date: 20101004
  Receipt Date: 20100927
  Transmission Date: 20110411
  Serious: Yes (Other)
  Sender: FDA-Public Use
  Company Number: A0883507A

PATIENT
  Age: 62 Year
  Sex: Female

DRUGS (5)
  1. FLOVENT [Suspect]
     Dosage: 1PUFF PER DAY
     Route: 055
  2. SEREVENT [Suspect]
     Dosage: 1PUFF PER DAY
     Route: 055
  3. LAMICTAL [Concomitant]
  4. LUNESTA [Concomitant]
  5. NEXIUM [Concomitant]

REACTIONS (2)
  - STOMATITIS [None]
  - TONGUE NEOPLASM [None]
